FAERS Safety Report 5875361-7 (Version None)
Quarter: 2008Q3

REPORT INFORMATION
  Report Type: 
  Country: None (occurrence: None)
  Receive Date: 20080909
  Receipt Date: 20080903
  Transmission Date: 20090109
  Serious: Yes (Death, Hospitalization, Other)
  Sender: FDA-Public Use
  Company Number: US-CELGENEUS-163-21880-08050728

PATIENT
  Sex: Female

DRUGS (2)
  1. REVLIMID [Suspect]
     Indication: CHRONIC MYELOMONOCYTIC LEUKAEMIA
     Route: 048
     Dates: start: 20080229, end: 20080509
  2. LEVOTHYROXINE SODIUM [Concomitant]
     Indication: HYPOTHYROIDISM
     Route: 065

REACTIONS (12)
  - ABDOMINAL INFECTION [None]
  - AORTIC THROMBOSIS [None]
  - GASTRIC PERFORATION [None]
  - GRANULOCYTE COUNT DECREASED [None]
  - HAEMOGLOBIN DECREASED [None]
  - ILEUS [None]
  - INTESTINAL INFARCTION [None]
  - MULTI-ORGAN FAILURE [None]
  - PAIN [None]
  - PLATELET COUNT DECREASED [None]
  - SPLENIC INFARCTION [None]
  - THROMBOSIS [None]
